FAERS Safety Report 7079175-4 (Version None)
Quarter: 2010Q4

REPORT INFORMATION
  Report Type: 
  Country: None (occurrence: None)
  Receive Date: 20101102
  Receipt Date: 20101028
  Transmission Date: 20110411
  Serious: Yes (Hospitalization)
  Sender: FDA-Public Use
  Company Number: A0890000A

PATIENT
  Age: 63 Year
  Sex: Male

DRUGS (2)
  1. AVANDIA [Suspect]
     Dosage: 4MG PER DAY
     Route: 048
     Dates: start: 20021025, end: 20030223
  2. AVANDARYL [Suspect]
     Route: 048
     Dates: start: 20060701, end: 20070830

REACTIONS (1)
  - CORONARY ARTERY DISEASE [None]
